FAERS Safety Report 17160317 (Version 5)
Quarter: 2022Q4

REPORT INFORMATION
  Report Type: Spontaneous
  Country: US (occurrence: US)
  Receive Date: 20191216
  Receipt Date: 20221006
  Transmission Date: 20230113
  Serious: Yes (Other)
  Sender: FDA-Public Use
  Company Number: US-PFIZER INC-2019447892

PATIENT
  Age: 73 Year
  Sex: Female

DRUGS (1)
  1. LORBRENA [Suspect]
     Active Substance: LORLATINIB
     Indication: Lung neoplasm malignant
     Dosage: 100 MG

REACTIONS (9)
  - Full blood count abnormal [Recovering/Resolving]
  - Dysphonia [Unknown]
  - Fatigue [Recovering/Resolving]
  - Sinusitis [Unknown]
  - Cough [Unknown]
  - Oropharyngeal pain [Unknown]
  - Ageusia [Unknown]
  - COVID-19 [Unknown]
  - Neoplasm progression [Unknown]
